FAERS Safety Report 5457255-4 (Version None)
Quarter: 2007Q3

REPORT INFORMATION
  Report Type: 
  Country: None (occurrence: None)
  Receive Date: 20070918
  Receipt Date: 20070206
  Transmission Date: 20080115
  Serious: No
  Sender: FDA-Public Use
  Company Number: US-ASTRAZENECA-2007UW02459

PATIENT
  Age: 81 Year
  Sex: Male

DRUGS (4)
  1. SEROQUEL [Suspect]
     Indication: DEMENTIA ALZHEIMER'S TYPE
     Route: 048
  2. XANAX [Concomitant]
  3. CARDIZEM [Concomitant]
  4. MULTIPLE CARDIAC MEDICATIONS [Concomitant]

REACTIONS (2)
  - FATIGUE [None]
  - FEELING ABNORMAL [None]
